FAERS Safety Report 19265604 (Version 3)
Quarter: 2021Q3

REPORT INFORMATION
  Report Type: Spontaneous
  Country: TR (occurrence: TR)
  Receive Date: 20210517
  Receipt Date: 20210816
  Transmission Date: 20211014
  Serious: Yes (Other)
  Sender: FDA-Public Use
  Company Number: TR-CLINIGEN GROUP PLC/ CLINIGEN HEALTHCARE LTD-TR-CLGN-21-00236

PATIENT
  Sex: Female
  Weight: 70.2 kg

DRUGS (5)
  1. CARDIOXANE [Suspect]
     Active Substance: DEXRAZOXANE HYDROCHLORIDE
     Indication: HODGKIN^S DISEASE
  2. ADRIAMYCIN [Concomitant]
     Active Substance: DOXORUBICIN HYDROCHLORIDE
     Indication: CHEMOTHERAPY
  3. VINKO [Concomitant]
     Indication: CHEMOTHERAPY
  4. DAKARBAZ [Concomitant]
     Indication: CHEMOTHERAPY
  5. BLEOMYCIN [Concomitant]
     Active Substance: BLEOMYCIN SULFATE
     Indication: CHEMOTHERAPY

REACTIONS (5)
  - Thrombophlebitis [Recovering/Resolving]
  - Application site swelling [Recovered/Resolved]
  - Off label use [Unknown]
  - Application site erythema [Recovered/Resolved]
  - Application site pain [Recovered/Resolved]

NARRATIVE: CASE EVENT DATE: 2021
